FAERS Safety Report 12781862 (Version 2)
Quarter: 2016Q3

REPORT INFORMATION
  Report Type: Spontaneous
  Country: FR (occurrence: FR)
  Receive Date: 20160926
  Receipt Date: 20160929
  Transmission Date: 20161109
  Serious: Yes (Life-Threatening, Hospitalization)
  Sender: FDA-Public Use
  Company Number: FR-ASTRAZENECA-2016SF02186

PATIENT
  Age: 19133 Day
  Sex: Female

DRUGS (9)
  1. XEROQUEL [Suspect]
     Active Substance: QUETIAPINE FUMARATE
     Dosage: 700.0MG UNKNOWN
     Route: 048
  2. TEGRETOL [Suspect]
     Active Substance: CARBAMAZEPINE
     Dosage: 1.0DF UNKNOWN
     Route: 048
  3. SERESTA [Suspect]
     Active Substance: OXAZEPAM
     Dosage: 1.0DF UNKNOWN
     Route: 048
  4. SULFARLEM [Concomitant]
     Active Substance: ANETHOLTRITHION
  5. HAVLANE [Suspect]
     Active Substance: LOPRAZOLAM
     Dosage: 1.0DF UNKNOWN
     Route: 048
  6. SERESTA [Suspect]
     Active Substance: OXAZEPAM
     Dosage: 5 BOXES, ONCE/SINGLE ADMINISTRATION
     Route: 048
     Dates: start: 20160816, end: 20160816
  7. XEROQUEL [Suspect]
     Active Substance: QUETIAPINE FUMARATE
     Dosage: 1400.0MG ONCE/SINGLE ADMINISTRATION
     Route: 048
     Dates: start: 20160816, end: 20160816
  8. TEGRETOL [Suspect]
     Active Substance: CARBAMAZEPINE
     Dosage: 1 PACKAGE, ONCE/SINGLE ADMINISTRATION UNKNOWN
     Route: 048
     Dates: start: 20160816, end: 20160816
  9. HAVLANE [Suspect]
     Active Substance: LOPRAZOLAM
     Dosage: 10.0DF ONCE/SINGLE ADMINISTRATION
     Route: 048
     Dates: start: 20160816, end: 20160816

REACTIONS (3)
  - Toxicity to various agents [Recovered/Resolved]
  - Coma [Recovered/Resolved]
  - Pneumonia aspiration [Recovered/Resolved]

NARRATIVE: CASE EVENT DATE: 20160816
